FAERS Safety Report 16465600 (Version 10)
Quarter: 2020Q1

REPORT INFORMATION
  Report Type: Report from Study
  Country: CO (occurrence: CO)
  Receive Date: 20190621
  Receipt Date: 20200323
  Transmission Date: 20200409
  Serious: Yes (Other)
  Sender: FDA-Public Use
  Company Number: CO-SA-2017SA256281

PATIENT
  Age: 61 Year
  Sex: Female

DRUGS (1)
  1. ALEMTUZUMAB [Suspect]
     Active Substance: ALEMTUZUMAB
     Indication: MULTIPLE SCLEROSIS
     Dosage: 12 MG,QD
     Route: 041
     Dates: start: 20171114, end: 20171116

REACTIONS (15)
  - Blood thyroid stimulating hormone decreased [Recovered/Resolved]
  - White blood cell count decreased [Recovered/Resolved]
  - Bacteriuria [Recovered/Resolved]
  - Blood urine present [Recovered/Resolved]
  - Red blood cells urine positive [Not Recovered/Not Resolved]
  - Bacteriuria [Recovered/Resolved]
  - Neutrophil count decreased [Recovered/Resolved]
  - Nitrite urine present [Recovered/Resolved]
  - Lymphocyte count decreased [Recovered/Resolved]
  - Blood creatinine increased [Recovered/Resolved]
  - Carpal tunnel decompression [Unknown]
  - Urinary tract infection bacterial [Recovered/Resolved]
  - Leukocyturia [Recovered/Resolved]
  - Lymphocyte percentage decreased [Recovered/Resolved]
  - Hypersensitivity [Unknown]

NARRATIVE: CASE EVENT DATE: 20171213
